FAERS Safety Report 5304721-8 (Version None)
Quarter: 2007Q1

REPORT INFORMATION
  Report Type: 
  Country: None (occurrence: None)
  Receive Date: 20070201
  Receipt Date: 20061117
  Transmission Date: 20070707
  Serious: No
  Sender: FDA-Public Use
  Company Number: 2006PV025470

PATIENT
  Age: 68 Year
  Sex: Male
  Weight: 76.2043 kg

DRUGS (12)
  1. BYETTA [Suspect]
     Indication: DIABETES MELLITUS NON-INSULIN-DEPENDENT
     Dosage: SEE IMAGE
     Route: 058
     Dates: start: 20061024, end: 20061113
  2. BYETTA [Suspect]
     Indication: DIABETES MELLITUS NON-INSULIN-DEPENDENT
     Dosage: SEE IMAGE
     Route: 058
     Dates: start: 20061114, end: 20061204
  3. BYETTA [Suspect]
     Indication: DIABETES MELLITUS NON-INSULIN-DEPENDENT
     Dosage: SEE IMAGE
     Route: 058
     Dates: start: 20061114
  4. BYETTA [Suspect]
     Indication: DIABETES MELLITUS NON-INSULIN-DEPENDENT
     Dosage: SEE IMAGE
     Route: 058
     Dates: start: 20061114
  5. BYETTA [Suspect]
     Indication: DIABETES MELLITUS NON-INSULIN-DEPENDENT
     Dosage: SEE IMAGE
     Route: 058
     Dates: start: 20061205
  6. BYETTA [Suspect]
  7. BYETTA [Suspect]
  8. BYETTA [Suspect]
  9. AMARYL [Concomitant]
  10. COREG [Concomitant]
  11. STARLIX [Concomitant]
  12. GLUCOPHAGE [Concomitant]

REACTIONS (9)
  - BLOOD GLUCOSE DECREASED [None]
  - DECREASED APPETITE [None]
  - DIARRHOEA [None]
  - DRUG EFFECT DECREASED [None]
  - DYSGEUSIA [None]
  - NAUSEA [None]
  - TREMOR [None]
  - VOMITING [None]
  - WEIGHT DECREASED [None]
